FAERS Safety Report 9803256 (Version 1)
Quarter: 2014Q1

REPORT INFORMATION
  Report Type: Spontaneous
  Country: GB (occurrence: GB)
  Receive Date: 20140108
  Receipt Date: 20140108
  Transmission Date: 20141002
  Serious: Yes (Other)
  Sender: FDA-Public Use
  Company Number: PHFR2014GB000469

PATIENT
  Sex: Female

DRUGS (1)
  1. ESTRADOT [Suspect]
     Indication: OESTROGEN REPLACEMENT THERAPY
     Dosage: 25 UG, BIW
     Route: 062

REACTIONS (1)
  - Thyroid disorder [Not Recovered/Not Resolved]
